FAERS Safety Report 6649638-1 (Version None)
Quarter: 2010Q1

REPORT INFORMATION
  Report Type: 
  Country: None (occurrence: None)
  Receive Date: 20100324
  Receipt Date: 20090304
  Transmission Date: 20100710
  Serious: No
  Sender: FDA-Public Use
  Company Number: US-AMGEN-KDL336909

PATIENT
  Age: 42 Year
  Sex: Female

DRUGS (4)
  1. NEULASTA [Suspect]
     Indication: CHEMOTHERAPY
     Dates: start: 20090201
  2. TAXOTERE [Concomitant]
     Dates: start: 20090201
  3. CARBOPLATIN [Concomitant]
     Dates: start: 20090201
  4. HERCEPTIN [Concomitant]
     Dates: start: 20090201

REACTIONS (1)
  - DERMATITIS ACNEIFORM [None]
